FAERS Safety Report 9578403 (Version 1)
Quarter: 2013Q4

REPORT INFORMATION
  Report Type: Spontaneous
  Country: US (occurrence: US)
  Receive Date: 20131001
  Receipt Date: 20131001
  Transmission Date: 20140711
  Serious: No
  Sender: FDA-Public Use
  Company Number: US-AMGEN-USASP2013012560

PATIENT
  Sex: Female

DRUGS (7)
  1. ENBREL [Suspect]
     Indication: PRODUCT USED FOR UNKNOWN INDICATION
     Dosage: 50 MG, QWK
     Route: 058
  2. MORPHINE SULFATE [Concomitant]
     Dosage: 100 MG ER
  3. SIMVASTATIN [Concomitant]
     Dosage: 10 MG, UNK
  4. GABAPENTIN [Concomitant]
     Dosage: 100 MG, UNK
  5. PREDNISONE [Concomitant]
     Dosage: 1 MG, UNK
  6. FOLIC ACID [Concomitant]
     Dosage: UNK
  7. METFORMIN [Concomitant]
     Dosage: 1000 MG, UNK

REACTIONS (3)
  - Impaired healing [Unknown]
  - Wound [Unknown]
  - Skin ulcer [Unknown]
